FAERS Safety Report 24644965 (Version 1)
Quarter: 2024Q4

REPORT INFORMATION
  Report Type: Spontaneous
  Country: US (occurrence: US)
  Receive Date: 20241121
  Receipt Date: 20241121
  Transmission Date: 20250114
  Serious: No
  Sender: Haleon PLC
  Company Number: US-HALEON-2210167

PATIENT
  Age: 69 Year
  Sex: Female

DRUGS (1)
  1. VOLTAREN ARTHRITIS PAIN [Suspect]
     Active Substance: DICLOFENAC SODIUM
     Indication: Pain
     Dosage: EXPDATE:20270531 ?2 - APPLICATION (AP)
     Dates: start: 20241118, end: 20241119

REACTIONS (1)
  - Drug ineffective [Unknown]
